FAERS Safety Report 7308949-7 (Version None)
Quarter: 2011Q1

REPORT INFORMATION
  Report Type: 
  Country: None (occurrence: None)
  Receive Date: 20110223
  Receipt Date: 20110110
  Transmission Date: 20110831
  Serious: Yes (Hospitalization, Other)
  Sender: FDA-Public Use
  Company Number: US-BAYER-201039318NA

PATIENT
  Sex: Female
  Weight: 77 kg

DRUGS (6)
  1. YAZ [Concomitant]
     Indication: MENSTRUAL CYCLE MANAGEMENT
  2. YASMIN [Suspect]
     Indication: CONTRACEPTION
     Dosage: UNK
     Route: 048
     Dates: start: 20031201, end: 20070201
  3. OCELLA [Concomitant]
     Indication: CONTRACEPTION
     Dosage: UNK
     Route: 048
     Dates: start: 20090401, end: 20090801
  4. YASMIN [Suspect]
     Indication: MENSTRUAL CYCLE MANAGEMENT
  5. OCELLA [Concomitant]
     Indication: MENSTRUAL CYCLE MANAGEMENT
  6. YAZ [Concomitant]
     Indication: CONTRACEPTION
     Dosage: UNK
     Route: 048
     Dates: start: 20070301, end: 20090301

REACTIONS (3)
  - FOOD INTOLERANCE [None]
  - PAIN [None]
  - CHOLECYSTITIS [None]
